FAERS Safety Report 7316349-9 (Version None)
Quarter: 2011Q1

REPORT INFORMATION
  Report Type: 
  Country: None (occurrence: None)
  Receive Date: 20110225
  Receipt Date: 20110218
  Transmission Date: 20110831
  Serious: Yes (Hospitalization)
  Sender: FDA-Public Use
  Company Number: US-ASTRAZENECA-2010SE08491

PATIENT
  Age: 53 Year
  Sex: Female

DRUGS (2)
  1. NEXIUM [Suspect]
     Dosage: 2 DAILY,SOMETIMES
     Route: 048
  2. NEXIUM [Suspect]
     Route: 048

REACTIONS (5)
  - PNEUMONIA [None]
  - INCORRECT DOSE ADMINISTERED [None]
  - MALAISE [None]
  - DRUG DOSE OMISSION [None]
  - BARRETT'S OESOPHAGUS [None]
